FAERS Safety Report 10480720 (Version 1)
Quarter: 2014Q3

REPORT INFORMATION
  Report Type: Spontaneous
  Country: US (occurrence: None)
  Receive Date: 20140925
  Receipt Date: 20140925
  Transmission Date: 20150326
  Serious: Yes (Hospitalization)
  Sender: FDA-Public Use
  Company Number: 2014HINLIT0828

PATIENT
  Age: 12 Year
  Sex: Female

DRUGS (12)
  1. SALMETEROL [Concomitant]
     Active Substance: SALMETEROL
  2. AZITHROMYCIN [Concomitant]
     Active Substance: AZITHROMYCIN ANHYDROUS
  3. ZIDOVUDINE (ZIDOVUDINE) UNKNOWN) [Suspect]
     Active Substance: ZIDOVUDINE
     Indication: HIV INFECTION
  4. COTRIMOXAZOLE [Concomitant]
     Active Substance: SULFAMETHOXAZOLE\TRIMETHOPRIM
  5. EFV (EFAVIRENZ) [Concomitant]
     Active Substance: EFAVIRENZ
  6. ALBUTEROL. [Concomitant]
     Active Substance: ALBUTEROL
  7. DEXAMETHASONE. [Concomitant]
     Active Substance: DEXAMETHASONE
  8. FP (FLUTICASONE PROPIONATE) (FP(FLUTICASONE PROPIONATE)) [Suspect]
     Active Substance: FLUTICASONE PROPIONATE
     Indication: PRODUCT USED FOR UNKNOWN INDICATION
     Dosage: 500, UNKNOWN
  9. MONTELUKAST [Concomitant]
     Active Substance: MONTELUKAST SODIUM
  10. LAMIVUDINE (LAMIVUDINE) UNKNOWN [Suspect]
     Active Substance: LAMIVUDINE
     Indication: HIV INFECTION
  11. LOPINAVIR + RITONAVIR (LOPINAVIR, RITONAVIR) UNKNOWN [Suspect]
     Active Substance: LOPINAVIR\RITONAVIR
     Indication: HIV INFECTION
     Dosage: RTV, 134 MG, UNKNOWN
  12. FLUCONAZOLE. [Concomitant]
     Active Substance: FLUCONAZOLE

REACTIONS (13)
  - Skin striae [None]
  - Weight increased [None]
  - Nausea [None]
  - Vomiting [None]
  - Abdominal pain upper [None]
  - Malaise [None]
  - Hirsutism [None]
  - Diarrhoea [None]
  - Decreased appetite [None]
  - Drug interaction [None]
  - Contusion [None]
  - Livedo reticularis [None]
  - Waist circumference increased [None]
